FAERS Safety Report 23657468 (Version 1)
Quarter: 2024Q1

REPORT INFORMATION
  Report Type: Spontaneous
  Country: FR (occurrence: FR)
  Receive Date: 20240321
  Receipt Date: 20240321
  Transmission Date: 20240410
  Serious: Yes (Hospitalization)
  Sender: FDA-Public Use
  Company Number: None

PATIENT
  Age: 50 Year
  Sex: Female
  Weight: 73 kg

DRUGS (7)
  1. CLONAZEPAM [Suspect]
     Active Substance: CLONAZEPAM
     Dosage: DAILY DOSE: 2 MILLIGRAM
     Route: 048
     Dates: start: 20240109, end: 20240109
  2. BROMAZEPAM [Suspect]
     Active Substance: BROMAZEPAM
     Dosage: DAILY DOSE: 3 MILLIGRAM
     Route: 048
     Dates: start: 20240109, end: 20240109
  3. TIAPRIDE HYDROCHLORIDE [Suspect]
     Active Substance: TIAPRIDE HYDROCHLORIDE
     Dosage: DAILY DOSE: 100 MILLIGRAM
     Route: 048
     Dates: start: 20240109, end: 20240109
  4. CYAMEMAZINE [Suspect]
     Active Substance: CYAMEMAZINE
     Dosage: DAILY DOSE: 150 MILLIGRAM
     Route: 048
     Dates: start: 20240109, end: 20240109
  5. CYAMEMAZINE [Suspect]
     Active Substance: CYAMEMAZINE
     Dosage: USUAL TREATMENT, TERCIAN 100 MG 0.5 CP
     Route: 048
  6. KEPPRA [Suspect]
     Active Substance: LEVETIRACETAM
     Dosage: DAILY DOSE: 750 MILLIGRAM
     Route: 048
     Dates: start: 20240109, end: 20240109
  7. CLOZAPINE [Suspect]
     Active Substance: CLOZAPINE
     Dosage: USUAL TREATMENT

REACTIONS (5)
  - Hypotension [Recovered/Resolved]
  - Somnolence [Recovered/Resolved]
  - Agitation [Recovered/Resolved]
  - Urinary incontinence [Recovered/Resolved]
  - Wrong patient received product [Recovered/Resolved]

NARRATIVE: CASE EVENT DATE: 20240109
